FAERS Safety Report 7389941-3 (Version None)
Quarter: 2011Q2

REPORT INFORMATION
  Report Type: 
  Country: None (occurrence: None)
  Receive Date: 20110401
  Receipt Date: 20110322
  Transmission Date: 20111010
  Serious: Yes (Life-Threatening, Hospitalization)
  Sender: FDA-Public Use
  Company Number: US-SANOFI-AVENTIS-2011SA018416

PATIENT
  Age: 62 Year
  Sex: Male
  Weight: 100 kg

DRUGS (11)
  1. BIVALIRUDIN [Suspect]
     Route: 065
  2. ANTIBIOTICS [Concomitant]
  3. ASPEGIC 325 [Suspect]
     Indication: ACUTE MYOCARDIAL INFARCTION
     Route: 065
     Dates: start: 20100804, end: 20100804
  4. ANALGESICS [Concomitant]
  5. BETA BLOCKING AGENTS [Concomitant]
  6. UNFRACTIONATED HEPARIN [Suspect]
     Indication: ACUTE MYOCARDIAL INFARCTION
     Route: 065
     Dates: start: 20100804, end: 20100804
  7. HMG COA REDUCTASE INHIBITORS [Concomitant]
  8. PLAVIX [Suspect]
     Indication: ACUTE MYOCARDIAL INFARCTION
     Route: 048
     Dates: start: 20100804, end: 20100804
  9. PROTON PUMP INHIBITORS [Concomitant]
  10. ACE INHIBITOR NOS [Concomitant]
  11. FUROSEMIDE [Concomitant]

REACTIONS (7)
  - PULMONARY OEDEMA [None]
  - PERICARDIAL HAEMORRHAGE [None]
  - CARDIAC ASTHMA [None]
  - PERICARDIAL EFFUSION [None]
  - PERICARDIAL DISEASE [None]
  - MYOCARDIAL INFARCTION [None]
  - OVERDOSE [None]
